FAERS Safety Report 6587747-6 (Version None)
Quarter: 2010Q1

REPORT INFORMATION
  Report Type: 
  Country: None (occurrence: None)
  Receive Date: 20100217
  Receipt Date: 20100217
  Transmission Date: 20100710
  Serious: Yes (Hospitalization, Other)
  Sender: FDA-Public Use
  Company Number: None

PATIENT
  Age: 37 Year
  Sex: Male
  Weight: 106.5953 kg

DRUGS (1)
  1. OXYCONTIN [Suspect]
     Indication: OSTEOARTHRITIS
     Dosage: 480MG DAY PO
     Route: 048
     Dates: start: 20030101, end: 20091014

REACTIONS (20)
  - ABDOMINAL PAIN [None]
  - COELIAC DISEASE [None]
  - DRUG WITHDRAWAL SYNDROME [None]
  - HAEMATOCRIT INCREASED [None]
  - HAEMOGLOBIN INCREASED [None]
  - HYPOAESTHESIA [None]
  - HYPONATRAEMIA [None]
  - LEUKOCYTOSIS [None]
  - MIOSIS [None]
  - MUSCLE CONTRACTIONS INVOLUNTARY [None]
  - MYDRIASIS [None]
  - NEUTROPHILIA [None]
  - NIGHT BLINDNESS [None]
  - ORAL DISCOMFORT [None]
  - PAIN [None]
  - RAYNAUD'S PHENOMENON [None]
  - SALIVARY HYPERSECRETION [None]
  - TACHYCARDIA [None]
  - TONGUE DISORDER [None]
  - UNEVALUABLE EVENT [None]
